FAERS Safety Report 12121276 (Version 1)
Quarter: 2016Q1

REPORT INFORMATION
  Report Type: Spontaneous
  Country: US (occurrence: US)
  Receive Date: 20160226
  Receipt Date: 20160226
  Transmission Date: 20160526
  Serious: No
  Sender: FDA-Public Use
  Company Number: US-ALLERGAN-1420291US

PATIENT
  Age: 81 Year
  Sex: Male

DRUGS (1)
  1. REFRESH OPTIVE SENSITIVE [Suspect]
     Active Substance: CARBOXYMETHYLCELLULOSE SODIUM\GLYCERIN
     Indication: DRY EYE
     Dosage: 3 TO 4 TIMES A DAY, 2 TIMES AT NIGHT
     Dates: start: 201409, end: 201409

REACTIONS (2)
  - Eye pain [Recovered/Resolved]
  - Scleral hyperaemia [Recovered/Resolved]

NARRATIVE: CASE EVENT DATE: 201409
